FAERS Safety Report 11321506 (Version 1)
Quarter: 2015Q3

REPORT INFORMATION
  Report Type: Spontaneous
  Country: US (occurrence: US)
  Receive Date: 20150729
  Receipt Date: 20150729
  Transmission Date: 20151125
  Serious: No
  Sender: FDA-Public Use
  Company Number: US-PFIZER INC-2015239530

PATIENT
  Age: 36 Year
  Sex: Male
  Weight: 98 kg

DRUGS (1)
  1. EMBEDA [Suspect]
     Active Substance: MORPHINE SULFATE\NALTREXONE HYDROCHLORIDE
     Indication: PAIN
     Dosage: 40 MG, 2X/DAY
     Route: 048
     Dates: start: 2015

REACTIONS (5)
  - Migraine [Not Recovered/Not Resolved]
  - Dyspnoea [Not Recovered/Not Resolved]
  - Chest pain [Not Recovered/Not Resolved]
  - Vomiting [Unknown]
  - Contraindicated drug administered [Not Recovered/Not Resolved]

NARRATIVE: CASE EVENT DATE: 201504
